FAERS Safety Report 14578654 (Version 1)
Quarter: 2018Q1

REPORT INFORMATION
  Report Type: Spontaneous
  Country: GB (occurrence: GB)
  Receive Date: 20180227
  Receipt Date: 20180227
  Transmission Date: 20180509
  Serious: Yes (Hospitalization, Disabling, Other)
  Sender: FDA-Public Use
  Company Number: GB-BRISTOL-MYERS SQUIBB COMPANY-BMS-2018-018131

PATIENT
  Age: 88 Year
  Sex: Female
  Weight: 44 kg

DRUGS (1)
  1. APIXABAN [Suspect]
     Active Substance: APIXABAN
     Indication: DEEP VEIN THROMBOSIS
     Dosage: 5 MG, UNK
     Route: 048

REACTIONS (3)
  - Haemorrhagic stroke [Recovered/Resolved with Sequelae]
  - Hemiparesis [Not Recovered/Not Resolved]
  - Rectal haemorrhage [Unknown]
